FAERS Safety Report 18788738 (Version 1)
Quarter: 2021Q1

REPORT INFORMATION
  Report Type: Spontaneous
  Country: US (occurrence: US)
  Receive Date: 20210125
  Receipt Date: 20210125
  Transmission Date: 20210419
  Serious: Yes (Other)
  Sender: FDA-Public Use
  Company Number: None

PATIENT
  Age: 8 Year
  Sex: Female
  Weight: 21 kg

DRUGS (8)
  1. DIVALPROEX SODIUM. [Concomitant]
     Active Substance: DIVALPROEX SODIUM
  2. CLOBAZAM. [Concomitant]
     Active Substance: CLOBAZAM
  3. DEPAKOTE SPRINKLES [Suspect]
     Active Substance: DIVALPROEX SODIUM
     Indication: SEIZURE
     Dosage: ?          QUANTITY:125 MG MILLIGRAM(S);?
     Dates: start: 20210110, end: 20210119
  4. BISACODYL. [Concomitant]
     Active Substance: BISACODYL
  5. MONTELUKAST [Concomitant]
     Active Substance: MONTELUKAST SODIUM
  6. MELATONIN [Concomitant]
     Active Substance: MELATONIN
  7. IRON SUPPLEMENT [Concomitant]
     Active Substance: IRON
  8. FLONASE [Concomitant]
     Active Substance: FLUTICASONE PROPIONATE

REACTIONS (2)
  - Product substitution issue [None]
  - Device occlusion [None]

NARRATIVE: CASE EVENT DATE: 20210112
